FAERS Safety Report 9631074 (Version 1)
Quarter: 2013Q4

REPORT INFORMATION
  Report Type: Spontaneous
  Country: US (occurrence: None)
  Receive Date: 20131016
  Receipt Date: 20131016
  Transmission Date: 20140711
  Serious: No
  Sender: FDA-Public Use
  Company Number: None

PATIENT
  Age: 7 Year
  Sex: Male
  Weight: 46.72 kg

DRUGS (1)
  1. KAPVAY 0.1 MG [Suspect]
     Route: 048
     Dates: start: 20121018

REACTIONS (3)
  - Disturbance in attention [None]
  - Aggression [None]
  - Drug ineffective [None]
